FAERS Safety Report 7359132-0 (Version None)
Quarter: 2011Q1

REPORT INFORMATION
  Report Type: 
  Country: None (occurrence: None)
  Receive Date: 20110317
  Receipt Date: 20110309
  Transmission Date: 20110831
  Serious: Yes (Life-Threatening)
  Sender: FDA-Public Use
  Company Number: RU-ASTRAZENECA-2011SE13590

PATIENT
  Age: 57 Year
  Sex: Female

DRUGS (5)
  1. FENTANYL [Suspect]
     Indication: INDUCTION OF ANAESTHESIA
     Route: 042
     Dates: start: 20081201
  2. MARCAINE [Suspect]
     Indication: EPIDURAL ANAESTHESIA
     Route: 008
     Dates: start: 20081201
  3. DITHYLIN [Concomitant]
     Indication: INDUCTION OF ANAESTHESIA
     Route: 042
     Dates: start: 20081201
  4. PROPOFOL [Concomitant]
     Indication: INDUCTION OF ANAESTHESIA
     Route: 042
     Dates: start: 20081201
  5. MARCAINE [Suspect]
     Route: 042
     Dates: start: 20081201

REACTIONS (4)
  - BRAIN INJURY [None]
  - HYPERTHERMIA [None]
  - BRADYCARDIA [None]
  - COMA [None]
